FAERS Safety Report 10411671 (Version 2)
Quarter: 2014Q3

REPORT INFORMATION
  Report Type: Spontaneous
  Country: US (occurrence: US)
  Receive Date: 20140827
  Receipt Date: 20140827
  Transmission Date: 20150326
  Serious: Yes (Hospitalization)
  Sender: FDA-Public Use
  Company Number: US-UCBSA-2014007609

PATIENT
  Age: 85 Year
  Sex: Male
  Weight: 72.5 kg

DRUGS (5)
  1. XYREM [Suspect]
     Active Substance: SODIUM OXYBATE
     Indication: CATAPLEXY
     Dosage: 3.75 G, 2X/DAY (BID)
     Route: 048
     Dates: start: 201307, end: 2013
  2. KEPPRA [Suspect]
     Active Substance: LEVETIRACETAM
     Indication: PROPHYLAXIS
     Dosage: UNKNWON DOSE AND FREQUENCY
     Dates: start: 2014, end: 20140720
  3. XYREM [Suspect]
     Active Substance: SODIUM OXYBATE
     Dosage: 4.5 G, 2X/DAY (BID)
     Route: 048
     Dates: start: 201308
  4. XYREM [Suspect]
     Active Substance: SODIUM OXYBATE
     Indication: NARCOLEPSY
     Dosage: 1.13 G, AS THE FIRST DOSE AND 1.12  AS THE SECOND DOSE , 500 MG/ML
     Route: 048
     Dates: start: 201306, end: 2013
  5. PREDNISONE. [Suspect]
     Active Substance: PREDNISONE
     Dosage: UNKNOWN DOSE AND FREQUENCY
     Route: 048
     Dates: start: 2014

REACTIONS (4)
  - Cataplexy [Not Recovered/Not Resolved]
  - Spinal fracture [Recovering/Resolving]
  - Fall [Recovered/Resolved]
  - Facial bones fracture [Recovering/Resolving]

NARRATIVE: CASE EVENT DATE: 20140629
